FAERS Safety Report 19016984 (Version 1)
Quarter: 2021Q1

REPORT INFORMATION
  Report Type: Spontaneous
  Country: GB (occurrence: GB)
  Receive Date: 20210316
  Receipt Date: 20210316
  Transmission Date: 20210420
  Serious: Yes (Other)
  Sender: FDA-Public Use
  Company Number: GB-TEVA-2021-GB-1880308

PATIENT
  Age: 31 Year
  Sex: Male
  Weight: 88 kg

DRUGS (3)
  1. FINASTERIDE. [Suspect]
     Active Substance: FINASTERIDE
     Indication: ANDROGENETIC ALOPECIA
  2. FINASTERIDE. [Suspect]
     Active Substance: FINASTERIDE
     Indication: ALOPECIA
  3. FINASTERIDE. [Suspect]
     Active Substance: FINASTERIDE
     Indication: ILL-DEFINED DISORDER
     Dosage: 1MG
     Route: 048
     Dates: start: 20210115, end: 20210205

REACTIONS (5)
  - Breast discomfort [Recovered/Resolved]
  - Breast mass [Not Recovered/Not Resolved]
  - Breast swelling [Not Recovered/Not Resolved]
  - Hyperaesthesia [Recovered/Resolved]
  - Nipple enlargement [Unknown]

NARRATIVE: CASE EVENT DATE: 20210131
